FAERS Safety Report 4289794-6 (Version None)
Quarter: 2004Q1

REPORT INFORMATION
  Report Type: 
  Country: None (occurrence: None)
  Receive Date: 20040210
  Receipt Date: 20040129
  Transmission Date: 20041129
  Serious: Yes (Other)
  Sender: FDA-Public Use
  Company Number: NO-GLAXOSMITHKLINE-B0321494A

PATIENT
  Age: 45 Year
  Sex: Male

DRUGS (8)
  1. VENTOLIN [Suspect]
     Indication: ASTHMA
     Dosage: .4MG PER DAY
     Route: 055
  2. AMINOPHYLLIN [Suspect]
     Indication: ASTHMA
     Dosage: 300MG PER DAY
     Route: 042
     Dates: start: 20031105, end: 20031105
  3. FORMOTEROL [Suspect]
     Indication: ASTHMA
     Dosage: 9MCG PER DAY
     Route: 055
  4. TERBUTALINE SULFATE [Suspect]
     Indication: ASTHMA
     Dosage: .25MG PER DAY
     Route: 055
  5. PULMICORT TURBO [Concomitant]
     Indication: ASTHMA
     Dosage: .4MG TWICE PER DAY
     Route: 055
  6. SODIUM VALPROATE [Concomitant]
     Indication: EPILEPSY
     Dosage: 300MG PER DAY
     Route: 048
  7. ATROVENT [Concomitant]
     Indication: ASTHMA
     Route: 055
     Dates: start: 20031105, end: 20031105
  8. BETAMETHASONE SODIUM PHOSPHATE [Concomitant]
     Indication: ASTHMA
     Dosage: 6MG PER DAY
     Route: 048

REACTIONS (2)
  - CONVULSION [None]
  - DRUG INTERACTION [None]
